FAERS Safety Report 21125259 (Version 2)
Quarter: 2022Q3

REPORT INFORMATION
  Report Type: Spontaneous
  Country: US (occurrence: None)
  Receive Date: 20220725
  Receipt Date: 20220804
  Transmission Date: 20221027
  Serious: Yes (Other)
  Sender: FDA-Public Use
  Company Number: US-FARMAPROD-202207-1284

PATIENT
  Age: 70 Year
  Sex: Male

DRUGS (2)
  1. OXERVATE [Suspect]
     Active Substance: CENEGERMIN-BKBJ
     Indication: Neurotrophic keratopathy
     Route: 047
     Dates: start: 20220421, end: 20220614
  2. SERUM TEARS [Concomitant]

REACTIONS (2)
  - Corneal neovascularisation [Recovering/Resolving]
  - Eye pain [Unknown]
